FAERS Safety Report 5842359-4 (Version None)
Quarter: 2008Q3

REPORT INFORMATION
  Report Type: 
  Country: None (occurrence: None)
  Receive Date: 20080812
  Receipt Date: 20080804
  Transmission Date: 20090109
  Serious: Yes (Hospitalization)
  Sender: FDA-Public Use
  Company Number: DK-BOEHRINGER INGELHEIM GMBH, GERMANY-2008-SW-00208DB

PATIENT
  Age: 64 Year
  Sex: Female

DRUGS (3)
  1. ASPIRIN AND DIPYRIDAMOLE [Suspect]
     Indication: CEREBROVASCULAR ACCIDENT
     Dosage: STRENGHT: 200 MG DIPYRIDAMOL + ASA 25 MG. DAILY DOSE: 400 MG DIPYRIDAMOL + ASA 50 MG.
     Dates: start: 20080401
  2. SIMVASTATIN [Concomitant]
     Indication: HYPERCHOLESTEROLAEMIA
  3. EFFEXOR [Concomitant]
     Indication: DEPRESSION

REACTIONS (3)
  - HYPOTENSION [None]
  - LOSS OF CONSCIOUSNESS [None]
  - PULSE ABNORMAL [None]
